FAERS Safety Report 22185174 (Version 1)
Quarter: 2023Q2

REPORT INFORMATION
  Report Type: Spontaneous
  Country: SA (occurrence: SA)
  Receive Date: 20230407
  Receipt Date: 20230407
  Transmission Date: 20230721
  Serious: Yes (Other)
  Sender: FDA-Public Use
  Company Number: SA-STERISCIENCE B.V.-2023-ST-001082

PATIENT
  Age: 64 Year
  Sex: Female

DRUGS (1)
  1. METOPROLOL [Suspect]
     Active Substance: METOPROLOL
     Indication: Product used for unknown indication
     Dosage: FOR 9 MONTHS
     Route: 065

REACTIONS (2)
  - Asthma [Unknown]
  - Product prescribing issue [Unknown]
